FAERS Safety Report 6079044-2 (Version None)
Quarter: 2009Q1

REPORT INFORMATION
  Report Type: 
  Country: None (occurrence: None)
  Receive Date: 20090216
  Receipt Date: 20090202
  Transmission Date: 20090719
  Serious: Yes (Other)
  Sender: FDA-Public Use
  Company Number: JP-ROCHE-610051

PATIENT
  Sex: Male
  Weight: 26 kg

DRUGS (5)
  1. TAMIFLU [Suspect]
     Indication: INFLUENZA
     Dosage: DRUG: TAMIFLU DRY SYRUP 3%.
     Route: 048
     Dates: start: 20090115, end: 20090115
  2. KLARICID [Concomitant]
     Route: 048
     Dates: start: 20090114, end: 20090119
  3. HUSTAZOL [Concomitant]
     Route: 048
     Dates: start: 20090114, end: 20090119
  4. MUCOSOLVAN [Concomitant]
     Route: 048
     Dates: start: 20090114, end: 20090119
  5. CALONAL [Concomitant]
     Dosage: TAKEN AS NEEDED: 300 MG
     Route: 048
     Dates: start: 20090115

REACTIONS (1)
  - ABNORMAL BEHAVIOUR [None]
